FAERS Safety Report 18410559 (Version 2)
Quarter: 2020Q4

REPORT INFORMATION
  Report Type: Report from Study
  Country: None (occurrence: US)
  Receive Date: 20201021
  Receipt Date: 20201113
  Transmission Date: 20210114
  Serious: Yes (Other)
  Sender: FDA-Public Use
  Company Number: US-ABBVIE-20K-163-3549577-00

PATIENT
  Age: 66 Year
  Sex: Female

DRUGS (1)
  1. HUMIRA [Suspect]
     Active Substance: ADALIMUMAB
     Indication: RHEUMATOID ARTHRITIS
     Dosage: CITRATE FREE
     Route: 058
     Dates: end: 202006

REACTIONS (9)
  - Cataract [Unknown]
  - Eye infection bacterial [Unknown]
  - Open globe injury [Unknown]
  - Corneal transplant [Unknown]
  - Urticaria [Unknown]
  - Colitis [Unknown]
  - Eye ulcer [Unknown]
  - Rectal haemorrhage [Unknown]
  - Sjogren^s syndrome [Unknown]

NARRATIVE: CASE EVENT DATE: 201912
